FAERS Safety Report 6877053-4 (Version None)
Quarter: 2010Q3

REPORT INFORMATION
  Report Type: 
  Country: None (occurrence: None)
  Receive Date: 20100727
  Receipt Date: 20100722
  Transmission Date: 20110219
  Serious: Yes (Hospitalization)
  Sender: FDA-Public Use
  Company Number: FR-ROCHE-716658

PATIENT
  Age: 86 Year
  Sex: Female

DRUGS (8)
  1. ROCEPHIN [Suspect]
     Indication: PRODUCT USED FOR UNKNOWN INDICATION
     Dosage: ROUTE: INTRAVENOUS, FORM: POWDER FOR SOLUTION FOR INFUSION.
     Route: 050
     Dates: start: 20100324, end: 20100528
  2. ROCEPHIN [Suspect]
     Dosage: ROUTE: ORAL
     Route: 050
     Dates: start: 20100528, end: 20100623
  3. RIFADIN [Suspect]
     Indication: PRODUCT USED FOR UNKNOWN INDICATION
     Dosage: ROUTE: INTRAVENOUS
     Route: 050
     Dates: start: 20100324, end: 20100528
  4. RIFADIN [Suspect]
     Dosage: ROUTE: ORAL
     Route: 050
     Dates: start: 20100528, end: 20100623
  5. TARGOCID [Suspect]
     Indication: PRODUCT USED FOR UNKNOWN INDICATION
     Dosage: ROUTE: INTRAVENOUS, FORM: INFUSION.
     Route: 050
     Dates: start: 20100324, end: 20100528
  6. TARGOCID [Suspect]
     Dosage: ROUTE: ORAL
     Route: 050
     Dates: start: 20100528, end: 20100623
  7. FLAGYL [Suspect]
     Indication: PRODUCT USED FOR UNKNOWN INDICATION
     Dosage: ROUTE: INTRAVENOUS
     Route: 050
     Dates: start: 20100325, end: 20100528
  8. FLAGYL [Suspect]
     Dosage: ROUTE: ORAL
     Route: 050
     Dates: start: 20100528, end: 20100623

REACTIONS (1)
  - GRAND MAL CONVULSION [None]
